FAERS Safety Report 9808541 (Version 2)
Quarter: 2014Q1

REPORT INFORMATION
  Report Type: Spontaneous
  Country: US (occurrence: US)
  Receive Date: 20140110
  Receipt Date: 20140127
  Transmission Date: 20141002
  Serious: Yes (Death)
  Sender: FDA-Public Use
  Company Number: US-JNJFOC-20140104215

PATIENT
  Age: 51 Year
  Sex: Female

DRUGS (8)
  1. TRAMADOL [Suspect]
     Indication: SUICIDE ATTEMPT
     Route: 048
  2. DIPHENHYDRAMINE [Suspect]
     Indication: SUICIDE ATTEMPT
     Route: 048
  3. GABAPENTIN [Suspect]
     Indication: SUICIDE ATTEMPT
     Route: 048
  4. PROMETHAZINE [Suspect]
     Indication: SUICIDE ATTEMPT
     Route: 048
  5. FLUOXETINE [Suspect]
     Indication: SUICIDE ATTEMPT
     Route: 048
  6. OXYCODONE [Suspect]
     Indication: SUICIDE ATTEMPT
     Route: 048
  7. HYDROCODONE [Suspect]
     Indication: SUICIDE ATTEMPT
     Route: 048
  8. CLONAZEPAM [Suspect]
     Indication: SUICIDE ATTEMPT
     Route: 048

REACTIONS (1)
  - Toxicity to various agents [Fatal]
